FAERS Safety Report 14570619 (Version 6)
Quarter: 2019Q1

REPORT INFORMATION
  Report Type: Spontaneous
  Country: US (occurrence: US)
  Receive Date: 20180226
  Receipt Date: 20190321
  Transmission Date: 20190417
  Serious: Yes (Hospitalization, Other)
  Sender: FDA-Public Use
  Company Number: US-BRISTOL-MYERS SQUIBB COMPANY-BMS-2018-018101

PATIENT
  Sex: Female
  Weight: 66.67 kg

DRUGS (1)
  1. ORENCIA [Suspect]
     Active Substance: ABATACEPT
     Indication: RHEUMATOID ARTHRITIS
     Dosage: 125 MG, QWK
     Route: 058
     Dates: start: 201610

REACTIONS (5)
  - Infection [Unknown]
  - Joint dislocation [Unknown]
  - Cough [Unknown]
  - Device breakage [Unknown]
  - Urinary tract infection [Unknown]
